FAERS Safety Report 19272127 (Version 1)
Quarter: 2021Q2

REPORT INFORMATION
  Report Type: Spontaneous
  Country: US (occurrence: US)
  Receive Date: 20210519
  Receipt Date: 20210519
  Transmission Date: 20210717
  Serious: No
  Sender: FDA-Public Use
  Company Number: US-SA-2021SA163248

PATIENT
  Sex: Male

DRUGS (5)
  1. DUPIXENT [Suspect]
     Active Substance: DUPILUMAB
     Indication: DERMATITIS ATOPIC
     Dosage: 300 MG / 2 ML PFS 2^S, 300 MG QOW
     Route: 058
     Dates: start: 202001
  2. SERTRALINE [Concomitant]
     Active Substance: SERTRALINE HYDROCHLORIDE
  3. VENLAFAXINE [Concomitant]
     Active Substance: VENLAFAXINE HYDROCHLORIDE
  4. EFFEXOR [Concomitant]
     Active Substance: VENLAFAXINE HYDROCHLORIDE
  5. MODERNA COVID?19 VACCINE [Concomitant]
     Active Substance: CX-024414

REACTIONS (5)
  - Product dose omission in error [Unknown]
  - Skin disorder [Unknown]
  - Injection site pain [Unknown]
  - Lack of injection site rotation [Unknown]
  - Product use issue [Unknown]

NARRATIVE: CASE EVENT DATE: 202001
